FAERS Safety Report 7864085-2 (Version None)
Quarter: 2011Q4

REPORT INFORMATION
  Report Type: 
  Country: None (occurrence: None)
  Receive Date: 20111028
  Receipt Date: 20111019
  Transmission Date: 20120403
  Serious: No
  Sender: FDA-Public Use
  Company Number: US-JNJFOC-20111009765

PATIENT
  Sex: Male
  Weight: 104.33 kg

DRUGS (2)
  1. DURAGESIC-100 [Suspect]
     Indication: BACK PAIN
     Route: 062
     Dates: start: 20090101
  2. DURAGESIC-100 [Suspect]
     Indication: ARTHRALGIA
     Route: 062
     Dates: start: 20090101

REACTIONS (1)
  - DRUG ADMINISTERED AT INAPPROPRIATE SITE [None]
